FAERS Safety Report 22613738 (Version 1)
Quarter: 2023Q2

REPORT INFORMATION
  Report Type: Spontaneous
  Country: NL (occurrence: NL)
  Receive Date: 20230619
  Receipt Date: 20230619
  Transmission Date: 20230722
  Serious: Yes (Hospitalization, Other)
  Sender: FDA-Public Use
  Company Number: NL-NOVITIUMPHARMA-2023NLNVP00953

PATIENT
  Sex: Male

DRUGS (5)
  1. PREDNISONE [Suspect]
     Active Substance: PREDNISONE
     Indication: Immune-mediated enterocolitis
     Route: 048
  2. PREDNISONE [Suspect]
     Active Substance: PREDNISONE
     Route: 042
  3. PREDNISONE [Suspect]
     Active Substance: PREDNISONE
     Route: 048
  4. INFLIXIMAB [Concomitant]
     Active Substance: INFLIXIMAB
     Indication: Immune-mediated enterocolitis
     Dosage: 4 COURSES
  5. TACROLIMUS [Concomitant]
     Active Substance: TACROLIMUS
     Indication: Immune-mediated enterocolitis

REACTIONS (1)
  - Campylobacter infection [Recovered/Resolved]
